FAERS Safety Report 9264485 (Version 1)
Quarter: 2013Q2

REPORT INFORMATION
  Report Type: Report from Study
  Country: CA (occurrence: CA)
  Receive Date: 20130501
  Receipt Date: 20130501
  Transmission Date: 20140414
  Serious: Yes (Hospitalization)
  Sender: FDA-Public Use
  Company Number: CA-ROCHE-1217416

PATIENT
  Age: 27 Year
  Sex: Female

DRUGS (5)
  1. OMALIZUMAB [Suspect]
     Indication: ASTHMA
     Route: 058
     Dates: start: 20101118
  2. OMALIZUMAB [Suspect]
     Route: 065
     Dates: start: 201301
  3. ADVAIR [Concomitant]
  4. QVAR [Concomitant]
  5. SINGULAIR [Concomitant]

REACTIONS (4)
  - Asthma [Unknown]
  - Sinus congestion [Unknown]
  - Nasopharyngitis [Unknown]
  - Productive cough [Unknown]
